FAERS Safety Report 10679738 (Version 1)
Quarter: 2014Q4

REPORT INFORMATION
  Report Type: Spontaneous
  Country: US (occurrence: US)
  Receive Date: 20141229
  Receipt Date: 20141229
  Transmission Date: 20150529
  Serious: No
  Sender: FDA-Public Use
  Company Number: US-GLAXOSMITHKLINE-US2014GSK043092

PATIENT
  Age: 55 Year
  Sex: Female

DRUGS (15)
  1. AMITIZA [Concomitant]
     Active Substance: LUBIPROSTONE
  2. PILOCARPINE [Concomitant]
     Active Substance: PILOCARPINE
  3. PLAQUINOL [Concomitant]
     Active Substance: HYDROXYCHLOROQUINE SULFATE
  4. VITAMIN D [Concomitant]
     Active Substance: CHOLECALCIFEROL
  5. ANORO ELLIPTA [Suspect]
     Active Substance: UMECLIDINIUM BROMIDE\VILANTEROL TRIFENATATE
     Indication: CHRONIC OBSTRUCTIVE PULMONARY DISEASE
     Dosage: 1 PUFF(S), QD
     Route: 055
     Dates: start: 20141022
  6. NASONEX [Concomitant]
     Active Substance: MOMETASONE FUROATE
  7. PROTONEX [Concomitant]
  8. CELEBREX [Concomitant]
     Active Substance: CELECOXIB
  9. VIVELLE DOT [Concomitant]
     Active Substance: ESTRADIOL
  10. FLEXERIL [Concomitant]
     Active Substance: CYCLOBENZAPRINE HYDROCHLORIDE
  11. XANAX [Concomitant]
     Active Substance: ALPRAZOLAM
  12. KLONOPIN [Concomitant]
     Active Substance: CLONAZEPAM
  13. TRANSDERMAL PATCH (MEDICATION UNKNOWN) [Concomitant]
  14. ADDERALL [Concomitant]
     Active Substance: AMPHETAMINE ASPARTATE\AMPHETAMINE SULFATE\DEXTROAMPHETAMINE SACCHARATE\DEXTROAMPHETAMINE SULFATE
  15. CYMBALTA [Concomitant]
     Active Substance: DULOXETINE HYDROCHLORIDE

REACTIONS (5)
  - Palpitations [Recovering/Resolving]
  - Heart rate increased [Recovering/Resolving]
  - Nervousness [Recovering/Resolving]
  - Tremor [Recovering/Resolving]
  - Blood pressure increased [Recovering/Resolving]

NARRATIVE: CASE EVENT DATE: 20141022
